FAERS Safety Report 7451966-7 (Version None)
Quarter: 2011Q2

REPORT INFORMATION
  Report Type: 
  Country: None (occurrence: None)
  Receive Date: 20110422
  Receipt Date: 20110419
  Transmission Date: 20111010
  Serious: Yes (Hospitalization, Other)
  Sender: FDA-Public Use
  Company Number: 1000018510

PATIENT
  Age: 82 Year
  Sex: Female

DRUGS (10)
  1. THYROID META MAX (THYROID META MAX) (THYROID META MAX) [Concomitant]
  2. COREG CR (CARVEDILOL) (CARVEDILOL) [Concomitant]
  3. AVALIDE (IRBESARTAN, HYDROCHLOROTHIAZIDE) (IRBESARTAN, HYDROCHLOROTHIA [Concomitant]
  4. REQUIP (ROPINIROLE HYDROCHLORIDE) (ROPINIROLE HYDROCHLORIDE) [Concomitant]
  5. WELLBUTRIN XL (BUPROPION HYDROCHLORIDE) (BUPROPION HYDROCHLORIDE) [Concomitant]
  6. ZETIA [Concomitant]
  7. LISINOPRIL [Concomitant]
  8. ROZEREM (RAMELTEON) (RAMELTEON) [Concomitant]
  9. LEXAPRO [Suspect]
     Indication: DEPRESSION
     Dosage: TABLETS (10 MG,1 IN 1 D),ORAL
     Route: 048
     Dates: start: 20060101, end: 20110101
  10. PROTONIX [Concomitant]

REACTIONS (11)
  - RENAL FAILURE CHRONIC [None]
  - VOMITING [None]
  - CONFUSIONAL STATE [None]
  - ANAEMIA [None]
  - AGGRESSION [None]
  - FALL [None]
  - PNEUMONIA [None]
  - ASTHENIA [None]
  - INAPPROPRIATE ANTIDIURETIC HORMONE SECRETION [None]
  - GASTRIC HAEMORRHAGE [None]
  - NAUSEA [None]
